FAERS Safety Report 9036134 (Version 4)
Quarter: 2013Q1

REPORT INFORMATION
  Report Type: Report from Study
  Country: US (occurrence: US)
  Receive Date: 20130129
  Receipt Date: 20130328
  Transmission Date: 20140127
  Serious: Yes (Other)
  Sender: FDA-Public Use
  Company Number: US-NAPPMUNDI-USA-2013-0097684

PATIENT
  Sex: Female
  Weight: 235.83 kg

DRUGS (1)
  1. OXYCONTIN (NDA 22-272) [Suspect]
     Indication: PAIN
     Dosage: 240 MG, Q8H
     Route: 048
     Dates: start: 1998

REACTIONS (8)
  - Tooth abscess [Recovered/Resolved]
  - Bedridden [Unknown]
  - Malaise [Unknown]
  - Influenza like illness [Unknown]
  - Vaccination complication [Unknown]
  - Body temperature increased [Unknown]
  - Nasopharyngitis [Unknown]
  - Pain [Unknown]
